FAERS Safety Report 16126619 (Version 1)
Quarter: 2019Q1

REPORT INFORMATION
  Report Type: Spontaneous
  Country: US (occurrence: US)
  Receive Date: 20190328
  Receipt Date: 20190328
  Transmission Date: 20190418
  Serious: No
  Sender: FDA-Public Use
  Company Number: US-009507513-1903USA002253

PATIENT
  Sex: Female

DRUGS (2)
  1. ETONOGESTREL IMPLANT- UNKNOWN [Suspect]
     Active Substance: ETONOGESTREL
     Dosage: 1 DOSAGE FORM
     Route: 059
  2. NEXPLANON [Suspect]
     Active Substance: ETONOGESTREL
     Dosage: 1 DOSAGE FORM, 1 ROD EVERY THREE YEARS
     Route: 059

REACTIONS (4)
  - Device deployment issue [Not Recovered/Not Resolved]
  - No adverse event [Unknown]
  - Complication of device removal [Not Recovered/Not Resolved]
  - Overdose [Not Recovered/Not Resolved]
